FAERS Safety Report 16168102 (Version 3)
Quarter: 2019Q2

REPORT INFORMATION
  Report Type: Spontaneous
  Country: US (occurrence: US)
  Receive Date: 20190408
  Receipt Date: 20190529
  Transmission Date: 20190711
  Serious: No
  Sender: FDA-Public Use
  Company Number: US-PFIZER INC-2019132554

PATIENT
  Age: 69 Year
  Sex: Female
  Weight: 84 kg

DRUGS (5)
  1. ACYCLOVIR [ACICLOVIR] [Concomitant]
     Active Substance: ACYCLOVIR
     Indication: INFECTION
     Dosage: UNK, TWICE A DAY, 400 OR 800MG TWICE DAILY DEPENDING ON IF SHE HAS INFECTION
     Route: 048
  2. DOXYCYCLINE. [Concomitant]
     Active Substance: DOXYCYCLINE
     Indication: INFECTION
     Dosage: 50 MG, ONCE DAILY
     Route: 048
  3. LATANOPROST. [Suspect]
     Active Substance: LATANOPROST
     Indication: INTRAOCULAR PRESSURE INCREASED
     Dosage: 2 GTT, 1X/DAY
     Route: 047
  4. LOTEMAX [Concomitant]
     Active Substance: LOTEPREDNOL ETABONATE
     Indication: TRANSPLANT
     Dosage: 2 GTT, 2X/DAY(0.5 ONE DROP TWICE A DAY BOTH EYES)
     Route: 047
  5. TIMOLOL. [Concomitant]
     Active Substance: TIMOLOL
     Indication: TRANSPLANT
     Dosage: 1 GTT, 1X/DAY(0.5 ONE DROP A DAY, RIGHT EYE ONLY)

REACTIONS (5)
  - Drug hypersensitivity [Recovered/Resolved]
  - Incorrect dose administered [Unknown]
  - Eye pruritus [Recovered/Resolved]
  - Lacrimation increased [Recovered/Resolved]
  - Eye pain [Recovered/Resolved]
